FAERS Safety Report 5417872-4 (Version None)
Quarter: 2007Q3

REPORT INFORMATION
  Report Type: 
  Country: None (occurrence: None)
  Receive Date: 20070817
  Receipt Date: 20070726
  Transmission Date: 20080115
  Serious: Yes (Other)
  Sender: FDA-Public Use
  Company Number: FI-JNJFOC-20070406342

PATIENT
  Age: 17 Year
  Sex: Female

DRUGS (6)
  1. TOPIMAX [Suspect]
  2. TOPIMAX [Suspect]
  3. TOPIMAX [Suspect]
  4. TOPIMAX [Suspect]
     Indication: MIGRAINE PROPHYLAXIS
  5. CLOTAM [Suspect]
     Indication: DRUG USE FOR UNKNOWN INDICATION
  6. PANADOL [Suspect]
     Indication: DRUG USE FOR UNKNOWN INDICATION

REACTIONS (3)
  - ELECTROCARDIOGRAM T WAVE INVERSION [None]
  - OVERDOSE [None]
  - SUICIDE ATTEMPT [None]
